FAERS Safety Report 24360410 (Version 1)
Quarter: 2024Q3

REPORT INFORMATION
  Report Type: Spontaneous
  Country: US (occurrence: US)
  Receive Date: 20240925
  Receipt Date: 20240925
  Transmission Date: 20241017
  Serious: Yes (Hospitalization, Other)
  Sender: JOHNSON AND JOHNSON
  Company Number: US-JNJFOC-20240964064

PATIENT
  Sex: Female

DRUGS (2)
  1. XARELTO [Suspect]
     Active Substance: RIVAROXABAN
     Indication: Thrombosis
     Route: 048
  2. ELIQUIS [Suspect]
     Active Substance: APIXABAN
     Indication: Thrombosis
     Route: 065

REACTIONS (6)
  - Pulmonary embolism [Unknown]
  - Right ventricular failure [Unknown]
  - Thrombosis [Unknown]
  - Hypervolaemia [Unknown]
  - Hypertension [Unknown]
  - Dyspnoea [Unknown]
